FAERS Safety Report 24095501 (Version 1)
Quarter: 2024Q3

REPORT INFORMATION
  Report Type: Spontaneous
  Country: CN (occurrence: CN)
  Receive Date: 20240716
  Receipt Date: 20240716
  Transmission Date: 20241016
  Serious: Yes (Hospitalization, Other)
  Sender: JIANGSU HANSOH PHARMACEUTICAL
  Company Number: CN-Jiangsu Hansoh Pharmaceutical Co., Ltd-2159148

PATIENT
  Age: 80 Year
  Sex: Male
  Weight: 54 kg

DRUGS (2)
  1. PEMETREXED [Suspect]
     Active Substance: PEMETREXED
     Indication: Lung adenocarcinoma stage IV
     Route: 041
     Dates: start: 20240626, end: 20240626
  2. CARBOPLATIN [Suspect]
     Active Substance: CARBOPLATIN
     Route: 041
     Dates: start: 20240626, end: 20240626

REACTIONS (3)
  - Platelet count decreased [Recovering/Resolving]
  - Tachypnoea [Unknown]
  - Haemoptysis [Unknown]

NARRATIVE: CASE EVENT DATE: 20240629
